FAERS Safety Report 15979307 (Version 3)
Quarter: 2019Q1

REPORT INFORMATION
  Report Type: Spontaneous
  Country: US (occurrence: US)
  Receive Date: 20190219
  Receipt Date: 20190314
  Transmission Date: 20190418
  Serious: Yes (Other)
  Sender: FDA-Public Use
  Company Number: US-DRREDDYS-USA/USA/19/0107937

PATIENT
  Age: 50 Year
  Sex: Male

DRUGS (7)
  1. GEMCITABINE [Suspect]
     Active Substance: GEMCITABINE\GEMCITABINE HYDROCHLORIDE
     Indication: METASTASES TO CENTRAL NERVOUS SYSTEM
  2. CISPLATIN. [Suspect]
     Active Substance: CISPLATIN
     Indication: METASTASES TO CENTRAL NERVOUS SYSTEM
     Dosage: SINGLE DOSE
     Dates: start: 201505
  3. PEMETREXED. [Suspect]
     Active Substance: PEMETREXED
     Indication: METASTASES TO CENTRAL NERVOUS SYSTEM
     Dosage: ONE DOSE
     Dates: start: 201406, end: 2014
  4. GEMCITABINE [Suspect]
     Active Substance: GEMCITABINE\GEMCITABINE HYDROCHLORIDE
     Indication: TRANSITIONAL CELL CARCINOMA
     Dosage: DAYS 1 AND 8
     Dates: start: 201403
  5. CISPLATIN. [Suspect]
     Active Substance: CISPLATIN
     Indication: TRANSITIONAL CELL CARCINOMA
     Dosage: ON DAY 1 EVERY 21 DAYS
     Dates: start: 201403
  6. PEMETREXED. [Suspect]
     Active Substance: PEMETREXED
     Indication: TRANSITIONAL CELL CARCINOMA
  7. CISPLATIN. [Suspect]
     Active Substance: CISPLATIN
     Dates: start: 201406

REACTIONS (5)
  - Thrombocytopenia [Recovered/Resolved]
  - Hyperbilirubinaemia [Recovered/Resolved]
  - Renal impairment [Unknown]
  - Transaminases increased [Not Recovered/Not Resolved]
  - Leukopenia [Unknown]

NARRATIVE: CASE EVENT DATE: 201403
